FAERS Safety Report 5141198-X (Version None)
Quarter: 2006Q4

REPORT INFORMATION
  Report Type: 
  Country: None (occurrence: None)
  Receive Date: 20061101
  Receipt Date: 20061023
  Transmission Date: 20070319
  Serious: Yes (Hospitalization)
  Sender: FDA-Public Use
  Company Number: PHHO2006MX17600

PATIENT
  Age: 32 Year
  Sex: Female

DRUGS (3)
  1. GLUCOPHAGE [Concomitant]
     Indication: DIABETES MELLITUS
  2. GLUCOBAY [Concomitant]
     Indication: DIABETES MELLITUS
  3. ZELMAC / HTF 919A [Suspect]
     Indication: IRRITABLE BOWEL SYNDROME
     Dosage: 6 MG, BID
     Route: 048
     Dates: start: 20060301, end: 20061017

REACTIONS (5)
  - ABDOMINAL PAIN [None]
  - CHOLECYSTECTOMY [None]
  - CHOLECYSTITIS [None]
  - PYREXIA [None]
  - VOMITING [None]
